FAERS Safety Report 21693093 (Version 1)
Quarter: 2022Q4

REPORT INFORMATION
  Report Type: Spontaneous
  Country: US (occurrence: None)
  Receive Date: 20221206
  Receipt Date: 20221206
  Transmission Date: 20230113
  Serious: Yes (Other)
  Sender: FDA-Public Use
  Company Number: None

PATIENT
  Age: 68 Year
  Sex: Male
  Weight: 89.36 kg

DRUGS (1)
  1. PAXLOVID [Suspect]
     Active Substance: NIRMATRELVIR\RITONAVIR
     Dosage: 300/100 PO?
     Route: 048
     Dates: start: 20221203

REACTIONS (2)
  - Frequent bowel movements [None]
  - Anorectal discomfort [None]

NARRATIVE: CASE EVENT DATE: 20221205
